FAERS Safety Report 6812621-7 (Version None)
Quarter: 2010Q3

REPORT INFORMATION
  Report Type: 
  Country: None (occurrence: None)
  Receive Date: 20100701
  Receipt Date: 20100623
  Transmission Date: 20110219
  Serious: Yes (Hospitalization, Other)
  Sender: FDA-Public Use
  Company Number: FR-PFIZER INC-2010078379

PATIENT
  Age: 72 Year
  Sex: Female

DRUGS (16)
  1. REVATIO [Suspect]
     Indication: PULMONARY ARTERIAL HYPERTENSION
     Dosage: 20 MG, 3X/DAY
     Dates: start: 20100406, end: 20100623
  2. AMLOR [Suspect]
     Dosage: UNK
  3. LASIX [Suspect]
     Dosage: 80 MG, 2X/DAY
  4. AMITRIPTYLINE HCL [Suspect]
     Dosage: UNK
  5. ALDACTONE [Concomitant]
     Dosage: UNK
  6. CORTANCYL [Concomitant]
     Dosage: UNK
  7. NEXIUM [Concomitant]
     Dosage: UNK
  8. FERROUS SULFATE/FOLIC ACID [Concomitant]
     Dosage: UNK
  9. CACIT D3 [Concomitant]
     Dosage: UNK
  10. DIFFU K [Concomitant]
     Dosage: UNK
  11. PREVISCAN [Concomitant]
     Dosage: UNK
  12. TRACLEER [Concomitant]
     Indication: PULMONARY ARTERIAL HYPERTENSION
     Dosage: UNK
  13. CONTRAMAL [Concomitant]
     Dosage: UNK
  14. FORLAX [Concomitant]
     Dosage: UNK
  15. DIGOXIN [Concomitant]
     Dosage: UNK
     Dates: end: 20100406
  16. CORDARONE [Concomitant]
     Dosage: UNK
     Dates: start: 20100406

REACTIONS (3)
  - DEAFNESS BILATERAL [None]
  - FALL [None]
  - HYPOTENSION [None]
